FAERS Safety Report 25731009 (Version 2)
Quarter: 2025Q4

REPORT INFORMATION
  Report Type: Report from Study
  Country: US (occurrence: US)
  Receive Date: 20250827
  Receipt Date: 20251020
  Transmission Date: 20260118
  Serious: No
  Sender: MALLINCKRODT
  Company Number: US-MALLINCKRODT-MNK202505327

PATIENT
  Sex: Female

DRUGS (2)
  1. CORTICOTROPIN [Suspect]
     Active Substance: CORTICOTROPIN
     Indication: Rheumatoid arthritis
     Dosage: UNKNOWN
  2. CORTICOTROPIN [Suspect]
     Active Substance: CORTICOTROPIN
     Dosage: UNKNOWN (LOWERED DOSE)

REACTIONS (7)
  - Hypoglycaemia [Unknown]
  - Skin striae [Unknown]
  - Mood swings [Unknown]
  - Hypertension [Unknown]
  - Weight increased [Unknown]
  - Insomnia [Unknown]
  - Pituitary-dependent Cushing^s syndrome [Unknown]
